FAERS Safety Report 5248212-1 (Version None)
Quarter: 2007Q1

REPORT INFORMATION
  Report Type: 
  Country: None (occurrence: None)
  Receive Date: 20070227
  Receipt Date: 20060724
  Transmission Date: 20070707
  Serious: No
  Sender: FDA-Public Use
  Company Number: US-BRISTOL-MYERS SQUIBB COMPANY-13453410

PATIENT
  Sex: Male

DRUGS (1)
  1. GLUCOPHAGE [Suspect]
     Indication: BLOOD GLUCOSE
     Dates: end: 20060708

REACTIONS (4)
  - BALANCE DISORDER [None]
  - FATIGUE [None]
  - HEADACHE [None]
  - NEUROPATHY PERIPHERAL [None]
